FAERS Safety Report 5057570-2 (Version None)
Quarter: 2006Q3

REPORT INFORMATION
  Report Type: 
  Country: None (occurrence: None)
  Receive Date: 20060721
  Receipt Date: 20051201
  Transmission Date: 20061208
  Serious: No
  Sender: FDA-Public Use
  Company Number: US-GLAXOSMITHKLINE-A0584290A

PATIENT
  Age: 69 Year
  Sex: Female

DRUGS (10)
  1. AVANDIA [Suspect]
     Dosage: 8MG PER DAY
     Route: 048
  2. SINGULAIR [Concomitant]
  3. LISINOPRIL [Concomitant]
  4. PEPCID [Concomitant]
  5. MAXZIDE [Concomitant]
  6. DARVOCET [Concomitant]
  7. ATENOLOL [Concomitant]
  8. EFFEXOR [Concomitant]
  9. ATIVAN [Concomitant]
  10. DIURETIC [Concomitant]

REACTIONS (1)
  - DYSPNOEA [None]
